FAERS Safety Report 18264827 (Version 3)
Quarter: 2020Q4

REPORT INFORMATION
  Report Type: Spontaneous
  Country: US (occurrence: US)
  Receive Date: 20200915
  Receipt Date: 20201012
  Transmission Date: 20210113
  Serious: Yes (Hospitalization)
  Sender: FDA-Public Use
  Company Number: US-JNJFOC-20200915709

PATIENT
  Age: 14 Year
  Sex: Female

DRUGS (1)
  1. BENADRYL [Suspect]
     Active Substance: DIPHENHYDRAMINE HYDROCHLORIDE
     Indication: HALLUCINATION
     Dosage: DOSE: LARGE AMOUNTS, IN MIDDLE OF NIGHT ON MEMORIAL DAY.
     Route: 065
     Dates: start: 202005

REACTIONS (4)
  - Dysarthria [Recovered/Resolved]
  - Heart rate increased [Recovered/Resolved]
  - Intentional product misuse [Unknown]
  - Intentional overdose [Recovered/Resolved]

NARRATIVE: CASE EVENT DATE: 202005
